FAERS Safety Report 26072118 (Version 1)
Quarter: 2025Q4

REPORT INFORMATION
  Report Type: Spontaneous
  Country: US (occurrence: US)
  Receive Date: 20251120
  Receipt Date: 20251120
  Transmission Date: 20260118
  Serious: Yes (Other)
  Sender: NOVO NORDISK
  Company Number: US-NOVOPROD-1567873

PATIENT
  Age: 84 Year
  Sex: Male

DRUGS (2)
  1. WEGOVY [Suspect]
     Active Substance: SEMAGLUTIDE
     Dosage: 0.5 MG, QW
     Dates: start: 202506
  2. WEGOVY [Suspect]
     Active Substance: SEMAGLUTIDE
     Indication: Weight control
     Dosage: 0.25 MG, QW
     Dates: start: 202505

REACTIONS (1)
  - Knee arthroplasty [Recovered/Resolved]

NARRATIVE: CASE EVENT DATE: 20250101
